FAERS Safety Report 15263319 (Version 1)
Quarter: 2018Q4

REPORT INFORMATION
  Report Type: Spontaneous
  Country: MX (occurrence: MX)
  Receive Date: 20180810
  Receipt Date: 20180810
  Transmission Date: 20190204
  Serious: Yes (Other)
  Sender: FDA-Public Use
  Company Number: MX-ZYDUS-021052

PATIENT
  Age: 69 Year
  Sex: Female

DRUGS (3)
  1. PRAMIPEXOLE/PRAMIPEXOLE DIHYDROCHLORIDE [Suspect]
     Active Substance: PRAMIPEXOLE DIHYDROCHLORIDE
     Indication: PARKINSON^S DISEASE
     Dosage: IMMEDIATE-RELEASE
     Route: 065
  2. PRAMIPEXOLE/PRAMIPEXOLE DIHYDROCHLORIDE [Suspect]
     Active Substance: PRAMIPEXOLE DIHYDROCHLORIDE
     Indication: PARKINSON^S DISEASE
     Dosage: EXTENDED RELEASE
     Route: 065
  3. PRAMIPEXOLE/PRAMIPEXOLE DIHYDROCHLORIDE [Suspect]
     Active Substance: PRAMIPEXOLE DIHYDROCHLORIDE
     Indication: PARKINSON^S DISEASE
     Dosage: EXTENDED RELEASE, INCREASING DOSE EVERY MONTH UP TO 3MG
     Route: 065

REACTIONS (4)
  - Dizziness [Unknown]
  - Pituitary haemorrhage [Unknown]
  - Inability to afford medication [Unknown]
  - Headache [Unknown]
